FAERS Safety Report 10758456 (Version 1)
Quarter: 2015Q1

REPORT INFORMATION
  Report Type: Spontaneous
  Country: US (occurrence: None)
  Receive Date: 20150202
  Receipt Date: 20150202
  Transmission Date: 20150721
  Serious: Yes (Other)
  Sender: FDA-Public Use
  Company Number: None

PATIENT
  Age: 77 Year
  Sex: Female

DRUGS (1)
  1. BEVACIZUMAB [Suspect]
     Active Substance: BEVACIZUMAB
     Indication: RETINAL VEIN OCCLUSION
     Dosage: INTRAVITREAL
     Dates: start: 20150117

REACTIONS (4)
  - Eye disorder [None]
  - Discomfort [None]
  - Pain [None]
  - Visual acuity reduced [None]

NARRATIVE: CASE EVENT DATE: 20150117
